FAERS Safety Report 15762071 (Version 1)
Quarter: 2018Q4

REPORT INFORMATION
  Report Type: Spontaneous
  Country: PT (occurrence: PT)
  Receive Date: 20181226
  Receipt Date: 20181226
  Transmission Date: 20190205
  Serious: Yes (Other)
  Sender: FDA-Public Use
  Company Number: PT-ANIPHARMA-2018-PT-000049

PATIENT
  Age: 82 Year
  Sex: Female

DRUGS (3)
  1. UNSPECIFIED PROBIOTICS [Concomitant]
  2. LOPERAMIDE [Concomitant]
     Active Substance: LOPERAMIDE
  3. CHOLESTYRAMINE (NON-SPECIFIC) [Suspect]
     Active Substance: CHOLESTYRAMINE
     Indication: DIARRHOEA

REACTIONS (1)
  - Colitis [Unknown]
